FAERS Safety Report 6791742-1 (Version None)
Quarter: 2010Q2

REPORT INFORMATION
  Report Type: 
  Country: None (occurrence: None)
  Receive Date: 20100624
  Receipt Date: 20080710
  Transmission Date: 20101027
  Serious: No
  Sender: FDA-Public Use
  Company Number: US-PFIZER INC-2008058673

PATIENT
  Age: 59 Year
  Sex: Male

DRUGS (2)
  1. DIFLUCAN [Suspect]
     Indication: FUNGAL INFECTION
     Route: 048
  2. LAMISIL [Suspect]
     Indication: FUNGAL INFECTION
     Route: 061
     Dates: start: 20080527, end: 20080530

REACTIONS (2)
  - DYSGEUSIA [None]
  - MALAISE [None]
